FAERS Safety Report 6413188-8 (Version None)
Quarter: 2009Q4

REPORT INFORMATION
  Report Type: 
  Country: None (occurrence: None)
  Receive Date: 20091026
  Receipt Date: 20091014
  Transmission Date: 20100525
  Serious: Yes (Hospitalization, Other)
  Sender: FDA-Public Use
  Company Number: PHHY2009FR30166

PATIENT
  Age: 63 Year
  Sex: Female

DRUGS (1)
  1. VOLTAREN [Suspect]
     Dosage: UNK
     Route: 048
     Dates: start: 20090401, end: 20090501

REACTIONS (12)
  - ASCITES [None]
  - ASTHENIA [None]
  - CELL DEATH [None]
  - CHOLESTASIS [None]
  - HEPATECTOMY [None]
  - HEPATIC FAILURE [None]
  - HEPATIC NEOPLASM [None]
  - HEPATITIS [None]
  - JAUNDICE CHOLESTATIC [None]
  - LIVER TRANSPLANT [None]
  - PORTAL HYPERTENSION [None]
  - VOMITING [None]
